FAERS Safety Report 17708447 (Version 1)
Quarter: 2020Q2

REPORT INFORMATION
  Report Type: Spontaneous
  Country: US (occurrence: US)
  Receive Date: 20200426
  Receipt Date: 20200426
  Transmission Date: 20200714
  Serious: Yes (Other)
  Sender: FDA-Public Use
  Company Number: NVSC2020US109909

PATIENT
  Age: 8 Month
  Sex: Female
  Weight: 7.56 kg

DRUGS (1)
  1. CEFTRIAXONE. [Suspect]
     Active Substance: CEFTRIAXONE
     Indication: PNEUMONIA
     Dosage: 400 MG, UNKNOWN
     Route: 065
     Dates: start: 20200402

REACTIONS (4)
  - Injection site pain [Unknown]
  - Urticaria [Recovered/Resolved]
  - Injection site mass [Recovered/Resolved]
  - Screaming [Unknown]

NARRATIVE: CASE EVENT DATE: 20200402
